FAERS Safety Report 12995768 (Version 2)
Quarter: 2016Q4

REPORT INFORMATION
  Report Type: Spontaneous
  Country: US (occurrence: US)
  Receive Date: 20161202
  Receipt Date: 20161229
  Transmission Date: 20170207
  Serious: No
  Sender: FDA-Public Use
  Company Number: US-SHIRE-US201617629

PATIENT
  Age: 51 Year
  Sex: Female

DRUGS (1)
  1. XIIDRA [Suspect]
     Active Substance: LIFITEGRAST
     Indication: DRY EYE
     Dosage: 1 GTT IN EACH EYE, 2X/DAY:BID
     Route: 047
     Dates: start: 20161101, end: 20161116

REACTIONS (2)
  - Instillation site pruritus [Recovered/Resolved]
  - Instillation site foreign body sensation [Recovered/Resolved]

NARRATIVE: CASE EVENT DATE: 20161101
